FAERS Safety Report 16798074 (Version 1)
Quarter: 2019Q3

REPORT INFORMATION
  Report Type: Spontaneous
  Country: US (occurrence: US)
  Receive Date: 20190912
  Receipt Date: 20190912
  Transmission Date: 20191005
  Serious: Yes (Life-Threatening, Other)
  Sender: FDA-Public Use
  Company Number: US-SUN PHARMACEUTICAL INDUSTRIES LTD-2019R1-219558

PATIENT
  Age: 17 Year
  Sex: Female

DRUGS (1)
  1. IBUPROFEN. [Suspect]
     Active Substance: IBUPROFEN
     Indication: PRODUCT USED FOR UNKNOWN INDICATION
     Dosage: UNK (100G) (1466 MG/KG DOSE)
     Route: 065

REACTIONS (8)
  - Hypotension [Unknown]
  - Agitation [Unknown]
  - Confusional state [Unknown]
  - Condition aggravated [Unknown]
  - Acute kidney injury [Unknown]
  - Vomiting [Unknown]
  - Depressed level of consciousness [Not Recovered/Not Resolved]
  - Lactic acidosis [Unknown]
